FAERS Safety Report 6058837-1 (Version None)
Quarter: 2009Q1

REPORT INFORMATION
  Report Type: 
  Country: None (occurrence: None)
  Receive Date: 20090130
  Receipt Date: 20090121
  Transmission Date: 20090719
  Serious: Yes (Death)
  Sender: FDA-Public Use
  Company Number: NL-JNJFOC-20090105384

PATIENT
  Age: 52 Year
  Sex: Female
  Weight: 86 kg

DRUGS (3)
  1. REMICADE [Suspect]
     Indication: RHEUMATOID ARTHRITIS
     Route: 042
  2. NAPROXEN [Concomitant]
  3. FENTANYL-75 [Concomitant]
     Route: 062

REACTIONS (8)
  - HEPATIC CONGESTION [None]
  - HEPATIC STEATOSIS [None]
  - MYOCARDIAL INFARCTION [None]
  - PNEUMONIA STREPTOCOCCAL [None]
  - PULMONARY HAEMORRHAGE [None]
  - RENAL DISORDER [None]
  - SEPSIS [None]
  - SPLEEN CONGESTION [None]
